FAERS Safety Report 23169960 (Version 1)
Quarter: 2023Q4

REPORT INFORMATION
  Report Type: Other
  Country: CN (occurrence: None)
  Receive Date: 20231110
  Receipt Date: 20231110
  Transmission Date: 20240109
  Serious: Yes (Other)
  Sender: FDA-Public Use
  Company Number: CN-ROCHE-3455109

PATIENT

DRUGS (7)
  1. TRASTUZUMAB [Suspect]
     Active Substance: TRASTUZUMAB
     Indication: HER2 positive breast cancer
     Route: 042
  2. TRASTUZUMAB [Suspect]
     Active Substance: TRASTUZUMAB
     Route: 042
  3. PERTUZUMAB [Suspect]
     Active Substance: PERTUZUMAB
     Indication: HER2 positive breast cancer
     Route: 065
  4. PERTUZUMAB [Suspect]
     Active Substance: PERTUZUMAB
     Route: 065
  5. PACLITAXEL [Suspect]
     Active Substance: PACLITAXEL
     Indication: HER2 positive breast cancer
     Route: 065
  6. PACLITAXEL [Suspect]
     Active Substance: PACLITAXEL
     Indication: HER2 positive breast cancer
     Route: 065
  7. CARBOPLATIN [Suspect]
     Active Substance: CARBOPLATIN
     Indication: HER2 positive breast cancer
     Route: 065

REACTIONS (5)
  - Diarrhoea [Unknown]
  - Myelosuppression [Recovering/Resolving]
  - Nausea [Unknown]
  - Vomiting [Unknown]
  - Asthenia [Unknown]
